FAERS Safety Report 16730974 (Version 1)
Quarter: 2019Q3

REPORT INFORMATION
  Report Type: Spontaneous
  Country: GB (occurrence: GB)
  Receive Date: 20190822
  Receipt Date: 20190822
  Transmission Date: 20191005
  Serious: Yes (Hospitalization)
  Sender: FDA-Public Use
  Company Number: GB-TEVA-2019-GB-1094285

PATIENT
  Age: 50 Year
  Sex: Male

DRUGS (10)
  1. IBUPROFEN. [Suspect]
     Active Substance: IBUPROFEN
     Indication: PAIN
     Dosage: THREE TO FOUR TIMES A DAY FOR 3 WEEKS
  2. LAMOTRIGINE. [Concomitant]
     Active Substance: LAMOTRIGINE
  3. CARVEDILOL. [Concomitant]
     Active Substance: CARVEDILOL
  4. PARACETAMOL [Concomitant]
     Active Substance: ACETAMINOPHEN
     Dosage: AS NECESSARY UP TO FOUR TIMES DAILY
  5. DIAZEPAM. [Concomitant]
     Active Substance: DIAZEPAM
  6. MOMETASONE [Concomitant]
     Active Substance: MOMETASONE
     Dosage: TWO SPRAYS TO BE USED IN EACH NOSTRIL
     Route: 045
  7. CANDESARTAN. [Concomitant]
     Active Substance: CANDESARTAN
  8. VOLTAROL [Suspect]
     Active Substance: DICLOFENAC SODIUM
     Indication: BACK PAIN
  9. ASACOL [Concomitant]
     Active Substance: MESALAMINE
  10. BUPRENORPHINE. [Concomitant]
     Active Substance: BUPRENORPHINE
     Dosage: 20MCG PER HOUR. REMOVE OLD PATCH BEFORE APPLYING NEW PATCH.
     Route: 062

REACTIONS (5)
  - Melaena [Unknown]
  - Haematemesis [Unknown]
  - Duodenal ulcer [Unknown]
  - Upper gastrointestinal haemorrhage [Recovered/Resolved]
  - Dizziness [Unknown]
